FAERS Safety Report 21700673 (Version 1)
Quarter: 2022Q4

REPORT INFORMATION
  Report Type: Spontaneous
  Country: US (occurrence: None)
  Receive Date: 20221207
  Receipt Date: 20221207
  Transmission Date: 20230112
  Serious: Yes (Death)
  Sender: FDA-Public Use
  Company Number: None

PATIENT
  Sex: Male

DRUGS (13)
  1. ARALAST NP [Suspect]
     Active Substance: .ALPHA.1-PROTEINASE INHIBITOR HUMAN
     Indication: Alpha-1 antitrypsin deficiency
     Dosage: FREQUENCY : WEEKLY;?ARALAST 1083 MG/VIAL, 20 VIALS. INFUSE FIVE 1083 MG VIALS (5415 MG TOTAL) INTRAV
     Route: 042
     Dates: start: 20210120, end: 20221205
  2. AZITHROMYCIN [Concomitant]
     Active Substance: AZITHROMYCIN
  3. EPINEPHRINE [Concomitant]
     Active Substance: EPINEPHRINE
  4. HYD POL/CPM SUS [Concomitant]
  5. LOSARTAN POTASSIUM [Concomitant]
     Active Substance: LOSARTAN POTASSIUM
  6. MULTIPLE VIT/IRON [Concomitant]
  7. OMEPRAZOLE [Concomitant]
     Active Substance: OMEPRAZOLE
  8. PREDNISONE [Concomitant]
     Active Substance: PREDNISONE
  9. SODIUM CHLORIDE [Concomitant]
     Active Substance: SODIUM CHLORIDE
  10. FLSH SYR [Concomitant]
  11. STRL FLSH SYR [Concomitant]
  12. TRELEGY AER ELLIPTA [Concomitant]
  13. VITAMIN D3 CHW [Concomitant]

REACTIONS (1)
  - Death [None]
